FAERS Safety Report 7001048-3 (Version None)
Quarter: 2010Q3

REPORT INFORMATION
  Report Type: 
  Country: None (occurrence: None)
  Receive Date: 20100920
  Receipt Date: 20070911
  Transmission Date: 20110219
  Serious: Yes (Other)
  Sender: FDA-Public Use
  Company Number: US-ASTRAZENECA-2006UW24597

PATIENT
  Age: 14978 Day
  Sex: Female
  Weight: 137.9 kg

DRUGS (7)
  1. SEROQUEL [Suspect]
     Indication: SLEEP DISORDER
     Dosage: 100-200 MG
     Route: 048
     Dates: start: 20010502
  2. SEROQUEL [Suspect]
     Route: 048
     Dates: start: 20020101
  3. ZYPREXA [Concomitant]
  4. DEPAKOTE [Concomitant]
  5. LEXAPRO [Concomitant]
  6. PLAQUENIL [Concomitant]
     Route: 048
     Dates: start: 20020730
  7. CELEXA [Concomitant]
     Route: 048
     Dates: start: 20020301

REACTIONS (1)
  - PANCREATITIS [None]
